FAERS Safety Report 24899987 (Version 3)
Quarter: 2025Q1

REPORT INFORMATION
  Report Type: Spontaneous
  Country: JP (occurrence: JP)
  Receive Date: 20250129
  Receipt Date: 20250221
  Transmission Date: 20250409
  Serious: Yes (Other)
  Sender: ELI LILLY AND COMPANY
  Company Number: JP-ELI_LILLY_AND_COMPANY-JP202501017401

PATIENT
  Age: 56 Year
  Sex: Female
  Weight: 47.5 kg

DRUGS (5)
  1. CYRAMZA [Suspect]
     Active Substance: RAMUCIRUMAB
     Indication: Lung adenocarcinoma stage IV
     Route: 041
     Dates: start: 20240509, end: 20241030
  2. DOCETAXEL [Suspect]
     Active Substance: DOCETAXEL
     Indication: Lung adenocarcinoma stage IV
     Route: 065
     Dates: start: 20240509, end: 20241030
  3. PEGFILGRASTIM [Concomitant]
     Active Substance: PEGFILGRASTIM
     Dates: start: 20240510
  4. OLANZAPINE [Concomitant]
     Active Substance: OLANZAPINE
     Indication: Prophylaxis of nausea and vomiting
     Route: 048
     Dates: start: 20240513
  5. OXYCODONE HYDROCHLORIDE [Concomitant]
     Active Substance: OXYCODONE HYDROCHLORIDE
     Indication: Cancer pain
     Dosage: 10 MG, DAILY
     Route: 048
     Dates: start: 20240404

REACTIONS (6)
  - Pleural effusion [Not Recovered/Not Resolved]
  - Cardiac failure [Not Recovered/Not Resolved]
  - Malignant neoplasm progression [Unknown]
  - Onycholysis [Unknown]
  - Decreased appetite [Unknown]
  - Oedema peripheral [Recovering/Resolving]

NARRATIVE: CASE EVENT DATE: 20240624
